FAERS Safety Report 7798869-6 (Version None)
Quarter: 2011Q4

REPORT INFORMATION
  Report Type: 
  Country: None (occurrence: None)
  Receive Date: 20111006
  Receipt Date: 20110927
  Transmission Date: 20120403
  Serious: Yes (Hospitalization)
  Sender: FDA-Public Use
  Company Number: US-JNJFOC-20060801828

PATIENT
  Sex: Female
  Weight: 94.26 kg

DRUGS (3)
  1. SEROQUEL [Suspect]
     Indication: MAJOR DEPRESSION
     Route: 065
     Dates: start: 20040405, end: 20040731
  2. LEXAPRO [Concomitant]
  3. RISPERDAL [Suspect]
     Indication: DEPRESSION
     Dates: start: 20030101, end: 20040301

REACTIONS (6)
  - HYPERLIPIDAEMIA [None]
  - DIABETES MELLITUS [None]
  - ABNORMAL WEIGHT GAIN [None]
  - BLOOD CHOLESTEROL INCREASED [None]
  - LIVER DISORDER [None]
  - MOOD SWINGS [None]
